FAERS Safety Report 21322996 (Version 5)
Quarter: 2023Q1

REPORT INFORMATION
  Report Type: Spontaneous
  Country: FR (occurrence: None)
  Receive Date: 20220912
  Receipt Date: 20230209
  Transmission Date: 20230417
  Serious: Yes (Other)
  Sender: FDA-Public Use
  Company Number: None

PATIENT
  Age: 76 Year
  Sex: Male
  Weight: 81 kg

DRUGS (19)
  1. LEVOTHYROXINE [Suspect]
     Active Substance: LEVOTHYROXINE
     Indication: Thyroid disorder
     Dosage: ONCE IN MORNING
     Route: 048
     Dates: start: 202106
  2. BISOPROLOL [Suspect]
     Active Substance: BISOPROLOL
     Indication: Hypertension
     Dosage: ONE TABLET IN THE MORNING
     Route: 048
     Dates: start: 2019
  3. CYANOCOBALAMIN [Suspect]
     Active Substance: CYANOCOBALAMIN
     Indication: Vitamin B12 deficiency
     Dosage: TWO AMPOULES WEEKLY, 1000 MICROG / 2 ML
     Route: 048
     Dates: start: 202112
  4. POTASSIUM CHLORIDE [Suspect]
     Active Substance: POTASSIUM CHLORIDE
     Indication: Hypokalaemia
     Dosage: TWO IN THE MORNING, ONE AT MIDDAY
     Route: 048
     Dates: start: 202101
  5. VENLAFAXINE [Suspect]
     Active Substance: VENLAFAXINE HYDROCHLORIDE
     Indication: Depression
     Dosage: ONCE IN THE MORNING
     Route: 048
     Dates: start: 202101
  6. AMLODIPINE [Suspect]
     Active Substance: AMLODIPINE BESYLATE
     Indication: Hypertension
     Dosage: ONCE IN THE MORNING
     Route: 048
     Dates: start: 2019
  7. HYDROCORTISONE [Suspect]
     Active Substance: HYDROCORTISONE
     Indication: Cortisol decreased
     Dosage: TWO IN THE MORNING
     Route: 048
     Dates: start: 202111
  8. PENICILLIN V [Suspect]
     Active Substance: PENICILLIN V
     Indication: Antibiotic prophylaxis
     Dosage: 1 000 000 U.I./10 ML, SUSPENSION BUVABLE
     Route: 048
     Dates: start: 202112
  9. FUROSEMIDE [Suspect]
     Active Substance: FUROSEMIDE
     Indication: Hypertension
     Dosage: ONE TABLET IN THE MORNING
     Route: 048
     Dates: start: 202101
  10. ATORVASTATIN [Suspect]
     Active Substance: ATORVASTATIN
     Indication: Dyslipidaemia
     Dosage: ONCE IN THE EVENING
     Route: 048
     Dates: start: 202108
  11. ACETAMINOPHEN [Suspect]
     Active Substance: ACETAMINOPHEN
     Indication: Pain
     Dosage: (1 G, ONE TABLET EVERY 8 H)
     Route: 048
     Dates: start: 202101
  12. IPRATROPIUM BROMIDE\FENOTEROL HYDROBROMIDE [Suspect]
     Active Substance: FENOTEROL HYDROBROMIDE\IPRATROPIUM BROMIDE
     Indication: Chronic obstructive pulmonary disease
     Dosage: 100 MICROGRAMS /40 MICROGRAMS; 50 MICROGRAMS /20 MICROGRAMS DOSE TWO PUFFS IN MORNING AND EVENING
     Route: 055
     Dates: start: 202112
  13. JANUVIA [Suspect]
     Active Substance: SITAGLIPTIN PHOSPHATE
     Indication: Type 2 diabetes mellitus
     Dosage: ONCE IN THE MORNING
     Route: 048
     Dates: start: 2019
  14. ISTODAX [Suspect]
     Active Substance: ROMIDEPSIN
     Indication: Cutaneous T-cell lymphoma
     Route: 042
     Dates: start: 20220221
  15. CHOLECALCIFEROL [Suspect]
     Active Substance: CHOLECALCIFEROL
     Indication: Vitamin D deficiency
     Dosage: 50000 UI; 50000 INTERNATIONAL UNIT ORAL DRINKABLE SOLUTION IN AMPOULE
     Route: 048
     Dates: start: 2019
  16. CLOPIDOGREL BISULFATE [Suspect]
     Active Substance: CLOPIDOGREL BISULFATE
     Indication: Cardiovascular event prophylaxis
     Dosage: ONCE IN THE MORNING
     Route: 048
     Dates: start: 2019
  17. CARBOXYMETHYLCELLULOSE SODIUM\GLYCERIN [Suspect]
     Active Substance: CARBOXYMETHYLCELLULOSE SODIUM\GLYCERIN
     Indication: Product used for unknown indication
     Dosage: SOLUTION LUBRICATING AND OSMOPROTECTIVE OCULAR SOLUTION; 1-2 DROPS PER DAY DEPENDING ON DISCOMFORT
     Route: 065
     Dates: start: 202101
  18. GLYCERIN\MINERAL OIL\PETROLATUM [Suspect]
     Active Substance: GLYCERIN\MINERAL OIL\PETROLATUM
     Indication: Product used for unknown indication
     Dosage: APPLICATION ON THE WHOLE BODY, 2 TUBES WEEKLY VIA UNKNOWN ROUTE
     Dates: start: 202112
  19. CLOBETASOL PROPIONATE [Concomitant]
     Active Substance: CLOBETASOL PROPIONATE
     Indication: Product used for unknown indication
     Dates: start: 202112

REACTIONS (1)
  - Mouth ulceration [Recovering/Resolving]

NARRATIVE: CASE EVENT DATE: 20220725
